FAERS Safety Report 4318273-2 (Version None)
Quarter: 2004Q1

REPORT INFORMATION
  Report Type: 
  Country: None (occurrence: None)
  Receive Date: 20040315
  Receipt Date: 20040302
  Transmission Date: 20041129
  Serious: Yes (Other)
  Sender: FDA-Public Use
  Company Number: 2004012493

PATIENT
  Age: 51 Year
  Sex: Male
  Weight: 165.5629 kg

DRUGS (13)
  1. NEURONTIN [Suspect]
     Indication: NEUROPATHY
     Dosage: ORAL
     Route: 048
     Dates: start: 20010101
  2. POTASSIUM CHLORIDE [Concomitant]
  3. FUROSEMIDE [Concomitant]
  4. METHADONE HCL [Concomitant]
  5. ALPRAZOLAM [Concomitant]
  6. ISOSORBIDE MONONITRATE (ISOSORBIDE MONONIRATE) [Concomitant]
  7. FENOFIBRATE [Concomitant]
  8. ACETYLSALICYLIC ACID SRT [Concomitant]
  9. COLCHICINE (COLCHICINE) [Concomitant]
  10. TRANDOLAPRIL (TRANDOLAPRIL) [Concomitant]
  11. ATENOLOL [Concomitant]
  12. ALLOPURINOL [Concomitant]
  13. OXYGEN (OXYGEN) [Concomitant]

REACTIONS (10)
  - BACTERIAL INFECTION [None]
  - CONDITION AGGRAVATED [None]
  - GASTRIC INFECTION [None]
  - HERNIA [None]
  - HERNIA HIATUS REPAIR [None]
  - IMPLANT SITE INFECTION [None]
  - MALAISE [None]
  - NEUROPATHY [None]
  - POSTOPERATIVE INFECTION [None]
  - VOMITING [None]
